FAERS Safety Report 18533654 (Version 2)
Quarter: 2020Q4

REPORT INFORMATION
  Report Type: Spontaneous
  Country: CN (occurrence: CN)
  Receive Date: 20201123
  Receipt Date: 20201201
  Transmission Date: 20210114
  Serious: Yes (Life-Threatening, Other)
  Sender: FDA-Public Use
  Company Number: CN-PFIZER INC-2020459871

PATIENT
  Age: 86 Year
  Sex: Male

DRUGS (3)
  1. MEPEM [Suspect]
     Active Substance: MEROPENEM
     Indication: PNEUMONIA
  2. MEPEM [Suspect]
     Active Substance: MEROPENEM
     Indication: BACTERAEMIA
     Dosage: 0.5 G, 2X/DAY
     Route: 041
     Dates: start: 20200727, end: 20200728
  3. MEPEM [Suspect]
     Active Substance: MEROPENEM
     Indication: ANTI-INFECTIVE THERAPY

REACTIONS (1)
  - Epilepsy [Recovered/Resolved]

NARRATIVE: CASE EVENT DATE: 20200728
